FAERS Safety Report 11660287 (Version 3)
Quarter: 2016Q2

REPORT INFORMATION
  Report Type: Spontaneous
  Country: IL (occurrence: IL)
  Receive Date: 20151026
  Receipt Date: 20160426
  Transmission Date: 20160815
  Serious: Yes (Hospitalization, Other)
  Sender: FDA-Public Use
  Company Number: IL-ASTRAZENECA-2015SF02345

PATIENT
  Age: 62 Year
  Sex: Male

DRUGS (17)
  1. FOLIC ACID. [Concomitant]
     Active Substance: FOLIC ACID
  2. METHROTEXATE [Concomitant]
  3. EZETROL [Concomitant]
     Active Substance: EZETIMIBE
  4. CARDILOC [Concomitant]
     Active Substance: BISOPROLOL FUMARATE
  5. CYMBALTA [Concomitant]
     Active Substance: DULOXETINE HYDROCHLORIDE
  6. VITAMIN D [Concomitant]
     Active Substance: CHOLECALCIFEROL
  7. PREDNISONE. [Concomitant]
     Active Substance: PREDNISONE
     Dosage: AS REQUIRED
  8. INSULIN [Concomitant]
     Active Substance: INSULIN NOS
  9. BONDORMIN [Concomitant]
     Active Substance: BROTIZOLAM
  10. LYRICA [Concomitant]
     Active Substance: PREGABALIN
  11. LANTUS [Concomitant]
     Active Substance: INSULIN GLARGINE
  12. VICTOZA [Concomitant]
     Active Substance: LIRAGLUTIDE
  13. CARTIA XT [Concomitant]
     Active Substance: DILTIAZEM HYDROCHLORIDE
  14. FORXIGA [Suspect]
     Active Substance: DAPAGLIFLOZIN
     Indication: TYPE 2 DIABETES MELLITUS
     Route: 048
  15. CALCIUM [Concomitant]
     Active Substance: CALCIUM
  16. ENALADEX [Concomitant]
     Active Substance: ENALAPRIL MALEATE
  17. LIPITOR [Concomitant]
     Active Substance: ATORVASTATIN CALCIUM

REACTIONS (5)
  - Dysphemia [Unknown]
  - Acute kidney injury [Recovered/Resolved]
  - Diabetic ketoacidosis [Unknown]
  - Syncope [Unknown]
  - Feeling abnormal [Unknown]

NARRATIVE: CASE EVENT DATE: 20150910
